FAERS Safety Report 4530123-8 (Version None)
Quarter: 2004Q4

REPORT INFORMATION
  Report Type: 
  Country: None (occurrence: None)
  Receive Date: 20041217
  Receipt Date: 20041208
  Transmission Date: 20050328
  Serious: Yes (Other)
  Sender: FDA-Public Use
  Company Number: FR-JNJFOC-20041106083

PATIENT
  Sex: Male
  Weight: 1.68 kg

DRUGS (1)
  1. EPITOMAX [Suspect]
     Indication: DRUG USE FOR UNKNOWN INDICATION
     Route: 015
     Dates: start: 20030701, end: 20040302

REACTIONS (4)
  - DEVELOPMENTAL DELAY [None]
  - FOETAL GROWTH RETARDATION [None]
  - MATERNAL DRUGS AFFECTING FOETUS [None]
  - PREMATURE LABOUR [None]
